FAERS Safety Report 5125107-5 (Version None)
Quarter: 2006Q4

REPORT INFORMATION
  Report Type: 
  Country: None (occurrence: None)
  Receive Date: 20061011
  Receipt Date: 20060821
  Transmission Date: 20070319
  Serious: Yes (Other)
  Sender: FDA-Public Use
  Company Number: PHEH2006US10660

PATIENT
  Age: 39 Year
  Sex: Female

DRUGS (7)
  1. ZOMETA [Suspect]
     Indication: METASTASES TO BONE
     Dosage: EVERY THREE WEEKS
  2. ZOMETA [Suspect]
     Dosage: WEEKLY
     Dates: start: 20020101
  3. ZOMETA [Suspect]
     Dosage: 4 MG, MONTHLY
     Dates: end: 20041101
  4. ZOMETA [Suspect]
     Dosage: EVERY THREE WEEKS
     Dates: start: 20050101
  5. ZOMETA [Suspect]
     Dosage: EVERY THREE WEEKS
     Dates: start: 20060701
  6. HERCEPTIN [Suspect]
     Dates: start: 20020101
  7. HERBAL EXTRACTS NOS [Concomitant]

REACTIONS (6)
  - ABDOMINAL PAIN UPPER [None]
  - ASTHENIA [None]
  - DUODENAL PERFORATION [None]
  - GASTRIC PERFORATION [None]
  - OBSTRUCTION GASTRIC [None]
  - ULCER [None]
